FAERS Safety Report 5831137-8 (Version None)
Quarter: 2008Q3

REPORT INFORMATION
  Report Type: 
  Country: None (occurrence: None)
  Receive Date: 20080801
  Receipt Date: 20080422
  Transmission Date: 20090109
  Serious: No
  Sender: FDA-Public Use
  Company Number: US-BRISTOL-MYERS SQUIBB COMPANY-14160378

PATIENT
  Age: 54 Year
  Sex: Female
  Weight: 96 kg

DRUGS (15)
  1. COUMADIN [Suspect]
     Indication: THROMBOSIS
     Dates: end: 20080417
  2. COUMADIN [Suspect]
     Indication: DEEP VEIN THROMBOSIS
     Dates: end: 20080417
  3. COUMADIN [Suspect]
     Indication: TRANSIENT ISCHAEMIC ATTACK
     Dates: end: 20080417
  4. ASPIRIN [Suspect]
     Indication: THROMBOSIS
     Dates: start: 20080417
  5. ASPIRIN [Suspect]
     Indication: DEEP VEIN THROMBOSIS
     Dates: start: 20080417
  6. ASPIRIN [Suspect]
     Indication: TRANSIENT ISCHAEMIC ATTACK
     Dates: start: 20080417
  7. ATENOLOL [Concomitant]
  8. PERCODAN-DEMI [Concomitant]
  9. METHADONE HCL [Concomitant]
  10. ADVAIR DISKUS 100/50 [Concomitant]
  11. LASIX [Concomitant]
  12. VYTORIN [Concomitant]
  13. DIAZEPAM [Concomitant]
  14. GLUCOPHAGE [Concomitant]
  15. OXYGEN [Concomitant]

REACTIONS (5)
  - ARTHRALGIA [None]
  - BACK PAIN [None]
  - HYPOAESTHESIA [None]
  - OEDEMA PERIPHERAL [None]
  - PARAESTHESIA [None]
